FAERS Safety Report 4825791-7 (Version None)
Quarter: 2005Q4

REPORT INFORMATION
  Report Type: 
  Country: None (occurrence: None)
  Receive Date: 20051111
  Receipt Date: 20041214
  Transmission Date: 20060501
  Serious: Yes (Other)
  Sender: FDA-Public Use
  Company Number: CH-GLAXOSMITHKLINE-B0362647A

PATIENT
  Age: 24 Year
  Sex: Female

DRUGS (2)
  1. MALARONE [Suspect]
     Indication: MALARIA PROPHYLAXIS
     Dosage: 1TAB PER DAY
     Route: 065
     Dates: start: 20040721, end: 20040727
  2. VIVOTIF [Suspect]
     Indication: TYPHOID FEVER
     Route: 065
     Dates: start: 20040720, end: 20040724

REACTIONS (2)
  - FEAR [None]
  - NORMAL DELIVERY [None]
